FAERS Safety Report 13687917 (Version 2)
Quarter: 2018Q2

REPORT INFORMATION
  Report Type: Report from Study
  Country: IT (occurrence: IT)
  Receive Date: 20170626
  Receipt Date: 20180411
  Transmission Date: 20180711
  Serious: Yes (Other)
  Sender: FDA-Public Use
  Company Number: IT-ROCHE-1953453

PATIENT
  Age: 54 Year
  Sex: Male

DRUGS (4)
  1. OBINUTUZUMAB. [Suspect]
     Active Substance: OBINUTUZUMAB
     Indication: DIFFUSE LARGE B-CELL LYMPHOMA REFRACTORY
     Dosage: ON DAY 1, 8, 15 CYCLE 1 AND CYCLE 2 ON DAY 1
     Route: 042
     Dates: start: 20170112, end: 20170328
  2. CYTARABINE. [Suspect]
     Active Substance: CYTARABINE
     Indication: DIFFUSE LARGE B-CELL LYMPHOMA REFRACTORY
     Dosage: IN 3-HOURS INFUSION EVERY 12 HOURS IV DAY 2 OF EVERY CYCLES
     Route: 042
     Dates: start: 20170113, end: 20170331
  3. CISPLATIN. [Suspect]
     Active Substance: CISPLATIN
     Indication: DIFFUSE LARGE B-CELL LYMPHOMA REFRACTORY
     Dosage: DAY 1 OF EVERY CYCLE IN 24 HOURS OF INFUSION
     Route: 042
     Dates: start: 20170112, end: 20170330
  4. DEXAMETHASONE. [Suspect]
     Active Substance: DEXAMETHASONE
     Indication: DIFFUSE LARGE B-CELL LYMPHOMA REFRACTORY
     Dosage: AY 1-4 OF EVERY CYCLES
     Route: 042
     Dates: start: 20170112, end: 20170402

REACTIONS (1)
  - Chronic kidney disease [Not Recovered/Not Resolved]

NARRATIVE: CASE EVENT DATE: 20170516
